FAERS Safety Report 9032656 (Version 1)
Quarter: 2013Q1

REPORT INFORMATION
  Report Type: Spontaneous
  Country: US (occurrence: US)
  Receive Date: 20130125
  Receipt Date: 20130125
  Transmission Date: 20140127
  Serious: Yes (Other)
  Sender: FDA-Public Use
  Company Number: US-ALLERGAN-1301006US

PATIENT
  Age: 30 Year
  Sex: Female

DRUGS (1)
  1. BOTOX? [Suspect]
     Indication: MIGRAINE
     Dosage: 155 UNITS, SINGLE
     Route: 030
     Dates: start: 20130111, end: 20130111

REACTIONS (3)
  - Tremor [Recovering/Resolving]
  - Respiratory distress [Recovering/Resolving]
  - Diplopia [Recovering/Resolving]
